FAERS Safety Report 8520175-2 (Version None)
Quarter: 2012Q3

REPORT INFORMATION
  Report Type: 
  Country: None (occurrence: None)
  Receive Date: 20120719
  Receipt Date: 20120712
  Transmission Date: 20120928
  Serious: Yes (Death)
  Sender: FDA-Public Use
  Company Number: IT-JNJFOC-20120708006

PATIENT

DRUGS (2)
  1. CLADRIBINE [Suspect]
     Indication: WALDENSTROM'S MACROGLOBULINAEMIA
     Dosage: FOR 5 CONSECUTIVE DAYS PER MONTHLY CYCLE FOR A TOTAL OF 4 CYCLES
     Route: 058
  2. RITUXIMAB [Suspect]
     Indication: WALDENSTROM'S MACROGLOBULINAEMIA
     Dosage: ON DAY 1 FOLLOWED BY 2-CDA FOR 5 CONSECUTIVE DAYS, ADMINISTERED MONTHLY FOR FOUR CYCLES
     Route: 065

REACTIONS (1)
  - PULMONARY FIBROSIS [None]
